FAERS Safety Report 7338852-8 (Version None)
Quarter: 2011Q1

REPORT INFORMATION
  Report Type: 
  Country: None (occurrence: None)
  Receive Date: 20110304
  Receipt Date: 20110304
  Transmission Date: 20110831
  Serious: Yes (Hospitalization)
  Sender: FDA-Public Use
  Company Number: None

PATIENT
  Age: 60 Year
  Sex: Female
  Weight: 58.9676 kg

DRUGS (1)
  1. BACLOFEN [Suspect]
     Indication: DYSTONIA
     Dosage: ONE TABLET 4 TIMES A DAY PO
     Route: 048
     Dates: start: 20101215, end: 20110214

REACTIONS (8)
  - CONDITION AGGRAVATED [None]
  - PRODUCT SUBSTITUTION ISSUE [None]
  - NIGHTMARE [None]
  - PARAESTHESIA [None]
  - DYSTONIA [None]
  - MIDDLE INSOMNIA [None]
  - HYPOAESTHESIA [None]
  - FALL [None]
